FAERS Safety Report 25838136 (Version 1)
Quarter: 2025Q3

REPORT INFORMATION
  Report Type: Spontaneous
  Country: US (occurrence: US)
  Receive Date: 20250923
  Receipt Date: 20250923
  Transmission Date: 20251021
  Serious: Yes (Other)
  Sender: ANI
  Company Number: US-ANIPHARMA-2025-US-029321

PATIENT
  Sex: Female

DRUGS (11)
  1. CORTICOTROPIN [Suspect]
     Active Substance: CORTICOTROPIN
     Indication: Dermatomyositis
     Route: 058
  2. MYCOPHENOLATE MOFETIL [Concomitant]
     Active Substance: MYCOPHENOLATE MOFETIL
  3. MAGNESIUM [Concomitant]
     Active Substance: MAGNESIUM
  4. DOXYCYCLINE HYCLATE [Concomitant]
     Active Substance: DOXYCYCLINE HYCLATE
  5. BROMPHEN/PSEUDO [Concomitant]
  6. PREDNISONE [Concomitant]
     Active Substance: PREDNISONE
  7. ALBUTEROL SULFATE [Concomitant]
     Active Substance: ALBUTEROL SULFATE
  8. MENAQUINONE 6 [Concomitant]
     Active Substance: MENAQUINONE 6
  9. METHOTREXATE SODIUM [Concomitant]
     Active Substance: METHOTREXATE SODIUM
  10. FOLIC ACID [Concomitant]
     Active Substance: FOLIC ACID
  11. CITALOPRAM HYDROBROMIDE [Concomitant]
     Active Substance: CITALOPRAM HYDROBROMIDE

REACTIONS (3)
  - Pneumonia [Unknown]
  - Pain in extremity [Not Recovered/Not Resolved]
  - Gait inability [Unknown]
